FAERS Safety Report 17839105 (Version 1)
Quarter: 2020Q2

REPORT INFORMATION
  Report Type: Report from Study
  Country: US (occurrence: US)
  Receive Date: 20200529
  Receipt Date: 20200529
  Transmission Date: 20200714
  Serious: No
  Sender: FDA-Public Use
  Company Number: NVSC2020US147364

PATIENT
  Sex: Female

DRUGS (1)
  1. GLEEVEC [Suspect]
     Active Substance: IMATINIB MESYLATE
     Indication: ARTHRITIS
     Dosage: UNK
     Route: 065

REACTIONS (2)
  - Arthritis [Unknown]
  - Product use in unapproved indication [Unknown]
